FAERS Safety Report 21996818 (Version 2)
Quarter: 2023Q2

REPORT INFORMATION
  Report Type: Report from Study
  Country: US (occurrence: US)
  Receive Date: 20230215
  Receipt Date: 20230630
  Transmission Date: 20230721
  Serious: Yes (Hospitalization)
  Sender: FDA-Public Use
  Company Number: US-GW PHARMA-2023-US-001356

PATIENT
  Age: 16 Year
  Sex: Female

DRUGS (1)
  1. EPIDIOLEX [Suspect]
     Active Substance: CANNABIDIOL
     Indication: Product used for unknown indication
     Dosage: TAKE 6 ML TWICE DAILY FOR 1 WEEK, THEN TAKE 7 ML TWICE DAILY THEREAFTER
     Route: 048

REACTIONS (5)
  - Swelling face [Unknown]
  - Muscle spasms [Unknown]
  - Seizure [Recovering/Resolving]
  - Peripheral swelling [Unknown]
  - Blood sodium decreased [Unknown]

NARRATIVE: CASE EVENT DATE: 20230117
